FAERS Safety Report 25159381 (Version 2)
Quarter: 2025Q2

REPORT INFORMATION
  Report Type: Spontaneous
  Country: US (occurrence: US)
  Receive Date: 20250404
  Receipt Date: 20250423
  Transmission Date: 20250717
  Serious: Yes (Life-Threatening, Hospitalization, Other)
  Sender: AUROBINDO
  Company Number: US-MLMSERVICE-20250317-PI448872-00218-1

PATIENT
  Age: 51 Year
  Sex: Female

DRUGS (1)
  1. METHOTREXATE [Suspect]
     Active Substance: METHOTREXATE
     Indication: Rheumatoid arthritis
     Route: 065

REACTIONS (5)
  - Organising pneumonia [Recovering/Resolving]
  - Sepsis [Recovering/Resolving]
  - Pulmonary toxicity [Recovering/Resolving]
  - Acute respiratory distress syndrome [Recovering/Resolving]
  - Respiratory failure [Recovering/Resolving]
